FAERS Safety Report 6929847-4 (Version None)
Quarter: 2010Q3

REPORT INFORMATION
  Report Type: 
  Country: None (occurrence: None)
  Receive Date: 20100817
  Receipt Date: 20100817
  Transmission Date: 20110219
  Serious: Yes (Other)
  Sender: FDA-Public Use
  Company Number: None

PATIENT
  Age: 74 Year
  Sex: Female

DRUGS (1)
  1. SEPTOCAINE [Suspect]
     Indication: LOCAL ANAESTHESIA
     Dosage: 1 CAPSULE ONCE LOCAL INFILTRATION
     Dates: start: 20100730

REACTIONS (3)
  - DRUG EFFECT PROLONGED [None]
  - LIP SWELLING [None]
  - RHINORRHOEA [None]
